FAERS Safety Report 18221765 (Version 1)
Quarter: 2020Q3

REPORT INFORMATION
  Report Type: Spontaneous
  Country: CA (occurrence: CA)
  Receive Date: 20200902
  Receipt Date: 20200902
  Transmission Date: 20201103
  Serious: Yes (Other)
  Sender: FDA-Public Use
  Company Number: CA-ACCORD-198462

PATIENT
  Sex: Female

DRUGS (1)
  1. MYCOPHENOLIC ACID. [Suspect]
     Active Substance: MYCOPHENOLIC ACID
     Indication: VASCULITIS
     Dosage: 2 EVERY 1 DAYS
     Route: 048

REACTIONS (4)
  - Blindness [Not Recovered/Not Resolved]
  - Drug ineffective [Unknown]
  - Deafness [Not Recovered/Not Resolved]
  - Eye inflammation [Not Recovered/Not Resolved]
